FAERS Safety Report 7540906-8 (Version None)
Quarter: 2011Q2

REPORT INFORMATION
  Report Type: 
  Country: None (occurrence: None)
  Receive Date: 20110610
  Receipt Date: 20110605
  Transmission Date: 20111010
  Serious: Yes (Other)
  Sender: FDA-Public Use
  Company Number: US-SHIRE-ALL1-2011-01733

PATIENT
  Age: 11 Year
  Sex: Female
  Weight: 39.909 kg

DRUGS (3)
  1. ADDERALL 10 [Concomitant]
     Indication: PRODUCT USED FOR UNKNOWN INDICATION
     Dosage: UNK, UNKNOWN
     Route: 048
  2. INTUNIV [Suspect]
     Indication: ATTENTION DEFICIT/HYPERACTIVITY DISORDER
     Dosage: 1 MG, 1X/DAY:QD
     Route: 048
     Dates: start: 20110526, end: 20110601
  3. INTUNIV [Suspect]
     Indication: TOURETTE'S DISORDER
     Dosage: 2 MG, 1X/DAY:QD
     Route: 048
     Dates: start: 20110602, end: 20110605

REACTIONS (6)
  - BLINDNESS TRANSIENT [None]
  - ABDOMINAL DISCOMFORT [None]
  - VOMITING [None]
  - NAUSEA [None]
  - ASTHENIA [None]
  - COORDINATION ABNORMAL [None]
